FAERS Safety Report 17937978 (Version 3)
Quarter: 2020Q3

REPORT INFORMATION
  Report Type: Spontaneous
  Country: US (occurrence: US)
  Receive Date: 20200624
  Receipt Date: 20200721
  Transmission Date: 20201103
  Serious: Yes (Hospitalization, Other)
  Sender: FDA-Public Use
  Company Number: US-PFIZER INC-2019495842

PATIENT
  Age: 88 Year
  Sex: Female
  Weight: 67.13 kg

DRUGS (4)
  1. MAGNESIUM GLYCINATE [Concomitant]
     Active Substance: MAGNESIUM GLYCINATE
     Dosage: 1600 MG, DAILY
     Route: 048
  2. VYNDAQEL [Suspect]
     Active Substance: TAFAMIDIS MEGLUMINE
     Indication: AMYLOIDOSIS
     Dosage: 80 MG
  3. VYNDAQEL [Suspect]
     Active Substance: TAFAMIDIS MEGLUMINE
     Indication: ATRIAL FIBRILLATION
  4. VYNDAQEL [Suspect]
     Active Substance: TAFAMIDIS MEGLUMINE
     Indication: CARDIAC DISORDER
     Dosage: 80 MG, DAILY
     Route: 048
     Dates: start: 201911, end: 202006

REACTIONS (17)
  - Dehydration [Unknown]
  - Cerebrovascular accident [Unknown]
  - Off label use [Unknown]
  - Asthenia [Unknown]
  - Memory impairment [Unknown]
  - Dysphonia [Unknown]
  - Blood potassium decreased [Unknown]
  - Fluid intake reduced [Unknown]
  - Weight decreased [Unknown]
  - Blood electrolytes decreased [Unknown]
  - Renal disorder [Unknown]
  - Product use in unapproved indication [Unknown]
  - Pallor [Unknown]
  - Myocardial infarction [Unknown]
  - Dysphagia [Not Recovered/Not Resolved]
  - Eating disorder [Unknown]
  - Gait inability [Unknown]

NARRATIVE: CASE EVENT DATE: 202003
